FAERS Safety Report 23817190 (Version 3)
Quarter: 2024Q4

REPORT INFORMATION
  Report Type: Spontaneous
  Country: US (occurrence: US)
  Receive Date: 20240505
  Receipt Date: 20241019
  Transmission Date: 20250115
  Serious: No
  Sender: GLAXOSMITHKLINE
  Company Number: US-GLAXOSMITHKLINE-US2024AMR054730

PATIENT
  Sex: Female

DRUGS (2)
  1. ZEJULA [Suspect]
     Active Substance: NIRAPARIB
     Indication: Ovarian cancer
     Dosage: 300 MG, QD
  2. ZEJULA [Suspect]
     Active Substance: NIRAPARIB
     Dosage: 100 MG, QD

REACTIONS (8)
  - Platelet count decreased [Unknown]
  - Arthralgia [Unknown]
  - Pain in extremity [Unknown]
  - Malaise [Unknown]
  - Hypertension [Unknown]
  - Headache [Unknown]
  - Incorrect dose administered [Unknown]
  - Product dose omission issue [Unknown]
